FAERS Safety Report 5895861-3 (Version None)
Quarter: 2008Q3

REPORT INFORMATION
  Report Type: 
  Country: None (occurrence: None)
  Receive Date: 20080924
  Receipt Date: 20080911
  Transmission Date: 20090109
  Serious: Yes (Other)
  Sender: FDA-Public Use
  Company Number: US-JNJFOC-20080903998

PATIENT
  Sex: Female
  Weight: 68.04 kg

DRUGS (4)
  1. TRAMADOL HCL [Suspect]
     Indication: PAIN
     Dosage: AS NEEDED
     Route: 048
  2. FENTANYL TRANSDRMAL SYSTEM [Concomitant]
     Indication: ABDOMINAL PAIN
     Route: 062
  3. PREMARIN [Concomitant]
     Indication: HORMONE REPLACEMENT THERAPY
  4. OXYCODONE HCL [Concomitant]
     Indication: PAIN
     Route: 048

REACTIONS (2)
  - BACK PAIN [None]
  - CONVULSION [None]
